FAERS Safety Report 20405524 (Version 4)
Quarter: 2022Q2

REPORT INFORMATION
  Report Type: Spontaneous
  Country: IN (occurrence: IN)
  Receive Date: 20220131
  Receipt Date: 20220623
  Transmission Date: 20220721
  Serious: Yes (Other)
  Sender: FDA-Public Use
  Company Number: IN-PFIZER INC-202200114573

PATIENT
  Age: 68 Year
  Sex: Male
  Weight: 52 kg

DRUGS (5)
  1. CRIZOTINIB [Suspect]
     Active Substance: CRIZOTINIB
     Indication: Lung adenocarcinoma stage IV
     Dosage: 250 MG, 2X/DAY
     Dates: start: 20201223
  2. CRIZOTINIB [Suspect]
     Active Substance: CRIZOTINIB
     Dosage: UNK
     Dates: end: 20211206
  3. CRIZOTINIB [Suspect]
     Active Substance: CRIZOTINIB
     Dosage: UNK
     Dates: start: 20220117
  4. CRIZOTINIB [Suspect]
     Active Substance: CRIZOTINIB
     Dosage: UNK
     Route: 048
  5. GEFITINIB [Concomitant]
     Active Substance: GEFITINIB
     Dosage: UNK
     Dates: start: 20201222, end: 20211211

REACTIONS (3)
  - Renal failure [Unknown]
  - Infection [Unknown]
  - Blood creatinine increased [Recovered/Resolved]
